FAERS Safety Report 19946668 (Version 1)
Quarter: 2021Q4

REPORT INFORMATION
  Report Type: Report from Study
  Country: CA (occurrence: CA)
  Receive Date: 20211013
  Receipt Date: 20211013
  Transmission Date: 20220303
  Serious: Yes (Other)
  Sender: FDA-Public Use
  Company Number: CA-JNJFOC-20210533356

PATIENT
  Age: 19 Year
  Sex: Male

DRUGS (1)
  1. REMICADE [Suspect]
     Active Substance: INFLIXIMAB
     Indication: Crohn^s disease
     Route: 042

REACTIONS (16)
  - Blood pressure decreased [Recovered/Resolved]
  - Infusion related reaction [Unknown]
  - Influenza like illness [Not Recovered/Not Resolved]
  - COVID-19 [Unknown]
  - Malaise [Unknown]
  - Anxiety [Unknown]
  - Asthenia [Unknown]
  - Feeling abnormal [Unknown]
  - Sleep disorder [Unknown]
  - Heart rate increased [Recovered/Resolved]
  - Fatigue [Unknown]
  - Frequent bowel movements [Unknown]
  - Dyspnoea [Unknown]
  - Rash [Recovered/Resolved]
  - Heart rate decreased [Recovered/Resolved]
  - Blood pressure increased [Recovered/Resolved]

NARRATIVE: CASE EVENT DATE: 20210301
